FAERS Safety Report 14033731 (Version 2)
Quarter: 2017Q4

REPORT INFORMATION
  Report Type: Spontaneous
  Country: US (occurrence: NZ)
  Receive Date: 20171003
  Receipt Date: 20171129
  Transmission Date: 20180321
  Serious: Yes (Hospitalization, Disabling)
  Sender: FDA-Public Use
  Company Number: US-SA-2017SA182644

PATIENT
  Age: 50 Year
  Sex: Male
  Weight: 105.5 kg

DRUGS (9)
  1. LANTUS [Suspect]
     Active Substance: INSULIN GLARGINE
     Indication: TYPE 1 DIABETES MELLITUS
     Dosage: DOSE:40 UNIT(S)
     Route: 058
     Dates: start: 20170829, end: 20170911
  2. DIAZEPAM. [Concomitant]
     Active Substance: DIAZEPAM
     Indication: DEPRESSION
     Route: 065
     Dates: start: 1998
  3. KENACOMB [Concomitant]
     Indication: ECZEMA
     Route: 065
  4. FLIXONASE [Concomitant]
     Active Substance: FLUTICASONE PROPIONATE
     Indication: ANXIETY
     Route: 065
     Dates: start: 2011
  5. BEZAFIBRATE [Concomitant]
     Active Substance: BEZAFIBRATE
     Indication: HYPERLIPIDAEMIA
     Route: 065
     Dates: start: 20160213
  6. IBUPROFEN. [Concomitant]
     Active Substance: IBUPROFEN
     Indication: REPETITIVE STRAIN INJURY
     Route: 065
     Dates: start: 2010
  7. INSULIN LISPRO [Concomitant]
     Active Substance: INSULIN LISPRO
     Indication: TYPE 1 DIABETES MELLITUS
     Dosage: DOSE:70 UNIT(S)
     Route: 065
     Dates: start: 20170829, end: 20170912
  8. ACCUPRIL [Concomitant]
     Active Substance: QUINAPRIL HYDROCHLORIDE
     Indication: HYPERTENSION
     Route: 065
     Dates: start: 20160113
  9. PARACETAMOL [Concomitant]
     Active Substance: ACETAMINOPHEN
     Indication: REPETITIVE STRAIN INJURY
     Route: 065
     Dates: start: 2010

REACTIONS (2)
  - Brachial plexus injury [Recovered/Resolved]
  - Ankle fracture [Recovering/Resolving]

NARRATIVE: CASE EVENT DATE: 20170911
